FAERS Safety Report 23737608 (Version 12)
Quarter: 2024Q4

REPORT INFORMATION
  Report Type: Report from Study
  Country: CA (occurrence: CA)
  Receive Date: 20240412
  Receipt Date: 20241122
  Transmission Date: 20250115
  Serious: Yes (Other)
  Sender: GLAXOSMITHKLINE
  Company Number: CA-GLAXOSMITHKLINE-CA2023AMR095132

PATIENT

DRUGS (7)
  1. BELIMUMAB [Suspect]
     Active Substance: BELIMUMAB
     Indication: Systemic lupus erythematosus
     Dosage: 10 MG/KG, Q4W
     Route: 042
     Dates: start: 20230216
  2. BELIMUMAB [Suspect]
     Active Substance: BELIMUMAB
     Dosage: 10 MG/KG, Q4W
     Route: 042
  3. BELIMUMAB [Suspect]
     Active Substance: BELIMUMAB
     Dosage: 10 MG/KG, Q4W
     Route: 042
  4. GRAVOL [Suspect]
     Active Substance: DIMENHYDRINATE
     Indication: Product used for unknown indication
     Dosage: 50 MG, PRE INFUSION MED
     Route: 048
  5. SODIUM CHLORIDE [Concomitant]
     Active Substance: SODIUM CHLORIDE
     Indication: Product used for unknown indication
     Dosage: UNK
  6. METHOTREXATE [Concomitant]
     Active Substance: METHOTREXATE
     Indication: Product used for unknown indication
     Dosage: 20 MG, WE
  7. HYDROXYCHLOROQUINE [Concomitant]
     Active Substance: HYDROXYCHLOROQUINE
     Indication: Product used for unknown indication
     Dosage: 300 MG

REACTIONS (34)
  - Pneumonia [Unknown]
  - Systemic lupus erythematosus [Not Recovered/Not Resolved]
  - Large intestine polyp [Not Recovered/Not Resolved]
  - Pleural effusion [Unknown]
  - Chest discomfort [Unknown]
  - Fatigue [Unknown]
  - Infection [Unknown]
  - Eye infection [Unknown]
  - Sinusitis [Unknown]
  - Blister infected [Not Recovered/Not Resolved]
  - Localised infection [Unknown]
  - Pyrexia [Unknown]
  - Chest pain [Unknown]
  - Heart rate increased [Unknown]
  - Chills [Unknown]
  - Malaise [Recovering/Resolving]
  - Illness [Unknown]
  - Breast mass [Unknown]
  - Night sweats [Unknown]
  - Blood pressure increased [Unknown]
  - Neutrophil count increased [Unknown]
  - Monocyte count increased [Unknown]
  - Lymphocyte count decreased [Unknown]
  - Uterine mass [Unknown]
  - Lymphocytic infiltration [Unknown]
  - Viral infection [Unknown]
  - Uterine leiomyoma [Unknown]
  - Productive cough [Not Recovered/Not Resolved]
  - Blood test abnormal [Unknown]
  - Weight fluctuation [Not Recovered/Not Resolved]
  - Stress [Not Recovered/Not Resolved]
  - Off label use [Unknown]
  - Product dose omission issue [Unknown]
  - Inappropriate schedule of product administration [Unknown]

NARRATIVE: CASE EVENT DATE: 20240101
